FAERS Safety Report 9771070 (Version 1)
Quarter: 2013Q4

REPORT INFORMATION
  Report Type: Spontaneous
  Country: GB (occurrence: GB)
  Receive Date: 20131218
  Receipt Date: 20131218
  Transmission Date: 20140711
  Serious: Yes (Other)
  Sender: FDA-Public Use
  Company Number: GB-PFIZER INC-2013362007

PATIENT
  Age: 78 Year
  Sex: Male

DRUGS (2)
  1. AMLODIPINE BESILATE [Suspect]
     Dosage: UNK
  2. VALSARTAN [Suspect]
     Dosage: UNK

REACTIONS (5)
  - Malaise [Unknown]
  - Dysgeusia [Unknown]
  - Drug ineffective [Unknown]
  - Blood pressure increased [Not Recovered/Not Resolved]
  - Transient ischaemic attack [Unknown]
